FAERS Safety Report 17811534 (Version 3)
Quarter: 2020Q2

REPORT INFORMATION
  Report Type: Spontaneous
  Country: JP (occurrence: JP)
  Receive Date: 20200521
  Receipt Date: 20200629
  Transmission Date: 20200714
  Serious: Yes (Death, Other)
  Sender: FDA-Public Use
  Company Number: JP-ACCORD-182398

PATIENT
  Age: 54 Year
  Sex: Female

DRUGS (1)
  1. METHOTREXATE. [Suspect]
     Active Substance: METHOTREXATE
     Indication: RHEUMATOID ARTHRITIS

REACTIONS (2)
  - Condition aggravated [Fatal]
  - Lymphoproliferative disorder [Fatal]
